FAERS Safety Report 21448882 (Version 1)
Quarter: 2022Q4

REPORT INFORMATION
  Report Type: Spontaneous
  Country: US (occurrence: US)
  Receive Date: 20221013
  Receipt Date: 20221013
  Transmission Date: 20230113
  Serious: Yes (Death, Other)
  Sender: FDA-Public Use
  Company Number: US-STRIDES ARCOLAB LIMITED-2022SP013315

PATIENT
  Age: 60 Year
  Sex: Male

DRUGS (18)
  1. PREDNISOLONE [Suspect]
     Active Substance: PREDNISOLONE
     Indication: Autoinflammatory disease
     Dosage: UNK; AVERAGE DOSAGE 20 MG/DAY
     Route: 048
  2. PREDNISOLONE [Suspect]
     Active Substance: PREDNISOLONE
     Dosage: UNK, WAS LOWERED {20MG DAILY
     Route: 065
  3. ANAKINRA [Suspect]
     Active Substance: ANAKINRA
     Indication: Autoinflammatory disease
     Dosage: 100 MILLIGRAM/DAY
     Route: 058
  4. INFLIXIMAB [Suspect]
     Active Substance: INFLIXIMAB
     Indication: Autoinflammatory disease
     Dosage: 5 MILLIGRAM/KILOGRAM (WEEK 0,2,6)
     Route: 042
  5. INFLIXIMAB [Suspect]
     Active Substance: INFLIXIMAB
     Dosage: 5 MILLIGRAM/KILOGRAM EVERY 6 WEEKS
     Route: 042
  6. INFLIXIMAB [Suspect]
     Active Substance: INFLIXIMAB
     Dosage: 10 MILLIGRAM/KILOGRAM, EVERY 4 WEEKS
     Route: 042
  7. ADALIMUMAB [Suspect]
     Active Substance: ADALIMUMAB
     Indication: Autoinflammatory disease
     Dosage: 40 MILLIGRAM EVERY 2 WEEKS
     Route: 058
  8. ADALIMUMAB [Suspect]
     Active Substance: ADALIMUMAB
     Dosage: 40 MILLIGRAM WEEKLY
     Route: 058
  9. SECUKINUMAB [Suspect]
     Active Substance: SECUKINUMAB
     Indication: Autoinflammatory disease
     Dosage: 150 MILLIGRAM WEEKLY
     Route: 058
  10. SECUKINUMAB [Suspect]
     Active Substance: SECUKINUMAB
     Dosage: 150 MILLIGRAM, EACH MONTH
     Route: 058
  11. SECUKINUMAB [Suspect]
     Active Substance: SECUKINUMAB
     Dosage: 300 MILLIGRAM, MONTHLY
     Route: 058
  12. RITUXIMAB [Suspect]
     Active Substance: RITUXIMAB
     Indication: Autoinflammatory disease
     Dosage: 1000 MILLIGRAM TWICE SEPARATED BY 14 DAYS FOR 6 MONTHS
     Route: 042
  13. RILONACEPT [Suspect]
     Active Substance: RILONACEPT
     Indication: Autoinflammatory disease
     Dosage: 320 MILLIGRAM/DAY
     Route: 058
  14. RILONACEPT [Suspect]
     Active Substance: RILONACEPT
     Dosage: 160 MILLIGRAM, ONCE A WEEK (TOTAL 3 MONTHS)
     Route: 058
  15. CANAKINUMAB [Suspect]
     Active Substance: CANAKINUMAB
     Indication: Autoinflammatory disease
     Dosage: 150 MILLIGRAM, EVERY 4 WEEKS
     Route: 058
  16. CANAKINUMAB [Suspect]
     Active Substance: CANAKINUMAB
     Dosage: 300 MILLIGRAM, EVERY 4 WEEKS
     Route: 058
  17. TOCILIZUMAB [Suspect]
     Active Substance: TOCILIZUMAB
     Indication: Autoinflammatory disease
     Dosage: 8 MILLIGRAM/KILOGRAM, ONCE A MONTH
     Route: 042
  18. TOFACITINIB [Suspect]
     Active Substance: TOFACITINIB
     Indication: Autoinflammatory disease
     Dosage: 11 MILLIGRAM/DAY
     Route: 048

REACTIONS (4)
  - Sepsis [Fatal]
  - Type 2 diabetes mellitus [Unknown]
  - Cataract [Unknown]
  - Mycobacterium chelonae infection [Unknown]
